FAERS Safety Report 8099882-4 (Version None)
Quarter: 2012Q1

REPORT INFORMATION
  Report Type: 
  Country: None (occurrence: None)
  Receive Date: 20120131
  Receipt Date: 20120123
  Transmission Date: 20120608
  Serious: Yes (Other)
  Sender: FDA-Public Use
  Company Number: FR-JNJFOC-20120111656

PATIENT
  Sex: Male

DRUGS (4)
  1. INTELENCE [Suspect]
     Route: 048
     Dates: end: 20111024
  2. INTELENCE [Suspect]
     Indication: ANTIRETROVIRAL THERAPY
     Route: 048
     Dates: start: 20111010
  3. TRUVADA [Suspect]
     Indication: ANTIRETROVIRAL THERAPY
     Dosage: 200MG/245MG
     Route: 048
     Dates: start: 20111010
  4. TRUVADA [Suspect]
     Route: 048
     Dates: end: 20111024

REACTIONS (3)
  - DIARRHOEA [None]
  - ABDOMINAL PAIN [None]
  - FLATULENCE [None]
